FAERS Safety Report 6868895-X (Version None)
Quarter: 2010Q3

REPORT INFORMATION
  Report Type: 
  Country: None (occurrence: None)
  Receive Date: 20100721
  Receipt Date: 20100721
  Transmission Date: 20110219
  Serious: Yes (Hospitalization)
  Sender: FDA-Public Use
  Company Number: None

PATIENT
  Sex: Female
  Weight: 62.5 kg

DRUGS (2)
  1. AZACITIDINE [Suspect]
     Indication: ACUTE MYELOID LEUKAEMIA
     Route: 042
  2. REVLIMID [Suspect]
     Route: 048

REACTIONS (12)
  - COUGH [None]
  - FATIGUE [None]
  - FEBRILE NEUTROPENIA [None]
  - FUNGAL INFECTION [None]
  - HYPOXIA [None]
  - LEUKOCYTOSIS [None]
  - LUNG CONSOLIDATION [None]
  - NAUSEA [None]
  - OROPHARYNGEAL PAIN [None]
  - PANCYTOPENIA [None]
  - PLEURITIC PAIN [None]
  - WEIGHT DECREASED [None]
